FAERS Safety Report 9102821 (Version 2)
Quarter: 2013Q1

REPORT INFORMATION
  Report Type: Spontaneous
  Country: US (occurrence: US)
  Receive Date: 20130219
  Receipt Date: 20130320
  Transmission Date: 20140127
  Serious: No
  Sender: FDA-Public Use
  Company Number: US-JNJFOC-20130208552

PATIENT
  Age: 23 Year
  Sex: Female

DRUGS (12)
  1. FLUCONAZOLE [Suspect]
     Indication: CANDIDA INFECTION
     Dosage: LOADING DOSE
     Route: 042
  2. FLUCONAZOLE [Suspect]
     Indication: CANDIDA INFECTION
     Route: 042
  3. FLUCONAZOLE [Suspect]
     Indication: CANDIDA INFECTION
     Route: 042
  4. FLUCONAZOLE [Suspect]
     Indication: CANDIDA INFECTION
     Route: 042
  5. FLUCONAZOLE [Suspect]
     Indication: CANDIDA INFECTION
     Route: 042
  6. FLUCONAZOLE [Suspect]
     Indication: CANDIDA INFECTION
     Route: 042
  7. FLUCONAZOLE [Suspect]
     Indication: CANDIDA INFECTION
     Route: 042
  8. IBUPROFEN [Suspect]
     Indication: TOCOLYSIS
     Route: 064
  9. AMPHOTERICIN B [Suspect]
     Indication: CANDIDA INFECTION
     Route: 064
  10. TERCONAZOLE [Suspect]
     Indication: CANDIDA INFECTION
     Route: 064
  11. GENTAMICIN [Suspect]
     Indication: CANDIDA INFECTION
     Route: 065
  12. AMPICILLIN [Suspect]
     Indication: CANDIDA INFECTION
     Route: 064

REACTIONS (2)
  - Exposure during pregnancy [Unknown]
  - Incorrect route of drug administration [Unknown]
